FAERS Safety Report 15673550 (Version 2)
Quarter: 2018Q4

REPORT INFORMATION
  Report Type: Not Available
  Country: US (occurrence: US)
  Receive Date: 20181129
  Receipt Date: 20181205
  Transmission Date: 20190205
  Serious: No
  Sender: FDA-Public Use
  Company Number: US-NEUROCRINE BIOSCIENCES INC.-2018NBI03344

PATIENT
  Sex: Male

DRUGS (2)
  1. INGREZZA [Suspect]
     Active Substance: VALBENAZINE
     Indication: DYSKINESIA
     Route: 048
     Dates: start: 20181019, end: 2018
  2. INGREZZA [Suspect]
     Active Substance: VALBENAZINE
     Dosage: 2 OF THE 40 MG CAPSULES DAILY
     Route: 048

REACTIONS (4)
  - Insomnia [Unknown]
  - Fatigue [Unknown]
  - Drug ineffective [None]
  - Abnormal dreams [Unknown]

NARRATIVE: CASE EVENT DATE: 2018
